FAERS Safety Report 7131051-4 (Version None)
Quarter: 2010Q4

REPORT INFORMATION
  Report Type: 
  Country: None (occurrence: None)
  Receive Date: 20101201
  Receipt Date: 20101124
  Transmission Date: 20110411
  Serious: Yes (Other)
  Sender: FDA-Public Use
  Company Number: JP-B.I. PHARMACEUTICALS,INC./RIDGEFIELD-2010-DE-06563GD

PATIENT
  Sex: Female

DRUGS (1)
  1. MELOXICAM [Suspect]

REACTIONS (2)
  - COLITIS COLLAGENOUS [None]
  - COLON CANCER [None]
